FAERS Safety Report 8935663 (Version 1)
Quarter: 2012Q4

REPORT INFORMATION
  Report Type: 
  Country: US (occurrence: US)
  Receive Date: 20121130
  Receipt Date: 20121130
  Transmission Date: 20130627
  Serious: Yes (Other)
  Sender: FDA-Public Use
  Company Number: US-PFIZER INC-2012299421

PATIENT
  Sex: Female

DRUGS (3)
  1. EFFEXOR XR [Suspect]
     Indication: DEPRESSION
     Dosage: 225 mg, 1x/day
     Route: 048
     Dates: start: 2007
  2. PREMPRO [Suspect]
     Indication: POSTMENOPAUSAL SYMPTOMS
     Dosage: 0.3/1.5 mg, 1x/day
     Route: 048
     Dates: start: 2007
  3. AMBIEN [Concomitant]
     Dosage: 10 mg, 1x/day

REACTIONS (1)
  - Retinal detachment [Unknown]
